FAERS Safety Report 4621894-0 (Version None)
Quarter: 2005Q1

REPORT INFORMATION
  Report Type: 
  Country: None (occurrence: None)
  Receive Date: 20050329
  Receipt Date: 20050321
  Transmission Date: 20050727
  Serious: Yes (Other)
  Sender: FDA-Public Use
  Company Number: BR-GLAXOSMITHKLINE-A0550686A

PATIENT
  Age: 54 Year
  Sex: Female
  Weight: 53 kg

DRUGS (2)
  1. ZYBAN [Suspect]
     Dosage: 150MG PER DAY
     Route: 048
     Dates: start: 20050319, end: 20050320
  2. DIAZEPAM [Concomitant]
     Dosage: 1TAB WEEKLY
     Route: 048
     Dates: start: 19850101

REACTIONS (4)
  - ANGINA PECTORIS [None]
  - ASTHENIA [None]
  - DIARRHOEA [None]
  - HEADACHE [None]
